FAERS Safety Report 7552310-7 (Version None)
Quarter: 2011Q2

REPORT INFORMATION
  Report Type: 
  Country: None (occurrence: None)
  Receive Date: 20110616
  Receipt Date: 20050620
  Transmission Date: 20111010
  Serious: Yes (Death)
  Sender: FDA-Public Use
  Company Number: PHHO2004ES05409

PATIENT
  Sex: Male

DRUGS (4)
  1. NAPROSYN [Concomitant]
  2. ZOMETA [Suspect]
     Indication: METASTASES TO BONE
     Dates: start: 20031218
  3. DEXAMETHASONE [Concomitant]
  4. ADOLONTA [Concomitant]

REACTIONS (1)
  - DEATH [None]
